FAERS Safety Report 23218097 (Version 1)
Quarter: 2023Q4

REPORT INFORMATION
  Report Type: Spontaneous
  Country: US (occurrence: US)
  Receive Date: 20231122
  Receipt Date: 20231122
  Transmission Date: 20240110
  Serious: Yes (Other)
  Sender: FDA-Public Use
  Company Number: US-BAYER-2023A165398

PATIENT

DRUGS (2)
  1. TINACTIN [Suspect]
     Active Substance: TOLNAFTATE
  2. LOTRIMIN [Suspect]
     Active Substance: CLOTRIMAZOLE

REACTIONS (1)
  - Mesothelioma [None]
